FAERS Safety Report 19079089 (Version 1)
Quarter: 2021Q1

REPORT INFORMATION
  Report Type: Spontaneous
  Country: CZ (occurrence: CZ)
  Receive Date: 20210331
  Receipt Date: 20210331
  Transmission Date: 20210420
  Serious: Yes (Death, Hospitalization, Other)
  Sender: FDA-Public Use
  Company Number: CZ-VALIDUS PHARMACEUTICALS LLC-CZ-2021VAL000380

PATIENT
  Age: 50 Year
  Sex: Male

DRUGS (3)
  1. BETAXOLOL HYDROCHLORIDE. [Suspect]
     Active Substance: BETAXOLOL HYDROCHLORIDE
     Indication: HYPERTENSION
     Dosage: 20 MG, QD,MONOTHERAPY,
     Route: 048
  2. METOPROLOL TARTRATE. [Suspect]
     Active Substance: METOPROLOL TARTRATE
     Indication: BLOOD PRESSURE MANAGEMENT
     Route: 040
  3. URAPIDIL [Suspect]
     Active Substance: URAPIDIL
     Indication: BLOOD PRESSURE MANAGEMENT
     Dosage: UNK
     Route: 041

REACTIONS (20)
  - Neurological decompensation [Fatal]
  - Cerebellar ischaemia [Unknown]
  - Arthralgia [Unknown]
  - Altered state of consciousness [Unknown]
  - Pain [Unknown]
  - Drug ineffective [None]
  - Disease progression [Unknown]
  - Back pain [Unknown]
  - Hyperhidrosis [Unknown]
  - Aortic dissection [Recovered/Resolved]
  - Cardiac tamponade [Unknown]
  - Pulse absent [Unknown]
  - Fibrin D dimer increased [Unknown]
  - Hypertension [Unknown]
  - Coma [Fatal]
  - Chest pain [Unknown]
  - Tachycardia [Unknown]
  - Treatment noncompliance [None]
  - Disease recurrence [Unknown]
  - Anxiety [Unknown]

NARRATIVE: CASE EVENT DATE: 2018
